FAERS Safety Report 4944084-0 (Version None)
Quarter: 2006Q1

REPORT INFORMATION
  Report Type: 
  Country: None (occurrence: None)
  Receive Date: 20060310
  Receipt Date: 20060303
  Transmission Date: 20060701
  Serious: Yes (Hospitalization)
  Sender: FDA-Public Use
  Company Number: FACT0600137

PATIENT
  Age: 64 Year
  Sex: Male
  Weight: 94.8 kg

DRUGS (14)
  1. FACTIVE [Suspect]
     Indication: RESPIRATORY TRACT INFECTION BACTERIAL
     Dosage: 320 MG, QD, ORAL
     Route: 048
     Dates: start: 20060222, end: 20060224
  2. VYTOREN (EZETIMIBE, SIMVASTATIN) [Concomitant]
  3. UNIVASC [Concomitant]
  4. NIFEDIPINE [Concomitant]
  5. VESICARE [Concomitant]
  6. HYDROCHLOROTHIAZIDE [Concomitant]
  7. ATENOLOL [Concomitant]
  8. NIZORAL [Concomitant]
  9. ASPIRIN [Concomitant]
  10. MULTIVITAMINS (ASCORBIC ACID, ERGOCALCIFEROL, FOLIC ACID, NICOTINAMIDE [Concomitant]
  11. TRIMAZOSIN (TRIMAZOSIN) [Concomitant]
  12. NASONEX [Concomitant]
  13. ACETAMINOPHEN [Concomitant]
  14. ADVIL [Concomitant]

REACTIONS (11)
  - ALANINE AMINOTRANSFERASE INCREASED [None]
  - ANAEMIA [None]
  - ASPARTATE AMINOTRANSFERASE INCREASED [None]
  - DECREASED APPETITE [None]
  - DIARRHOEA [None]
  - HAEMATURIA [None]
  - HAEMODIALYSIS [None]
  - HYPERKALAEMIA [None]
  - LOSS OF CONSCIOUSNESS [None]
  - MYALGIA [None]
  - RENAL FAILURE ACUTE [None]
